FAERS Safety Report 23296687 (Version 1)
Quarter: 2023Q4

REPORT INFORMATION
  Report Type: Spontaneous
  Country: AU (occurrence: AU)
  Receive Date: 20231214
  Receipt Date: 20231214
  Transmission Date: 20240110
  Serious: Yes (Other)
  Sender: FDA-Public Use
  Company Number: AU-002147023-NVSC2023AU260011

PATIENT
  Sex: Male

DRUGS (1)
  1. COSENTYX [Suspect]
     Active Substance: SECUKINUMAB
     Indication: Psoriatic arthropathy
     Dosage: 150 MG (2X 150 MG AT THE END OF EACH MONTH)
     Route: 065

REACTIONS (7)
  - Psoriatic arthropathy [Unknown]
  - Pain [Unknown]
  - Muscle discomfort [Unknown]
  - Malaise [Unknown]
  - Headache [Unknown]
  - Product dose omission issue [Unknown]
  - Drug ineffective [Unknown]
